FAERS Safety Report 15912758 (Version 1)
Quarter: 2019Q1

REPORT INFORMATION
  Report Type: Spontaneous
  Country: CN (occurrence: CN)
  Receive Date: 20190204
  Receipt Date: 20190204
  Transmission Date: 20190417
  Serious: Yes (Other)
  Sender: FDA-Public Use
  Company Number: CN-PFIZER INC-2019039935

PATIENT
  Age: 55 Year
  Sex: Male
  Weight: 65 kg

DRUGS (1)
  1. CELECOXIB. [Suspect]
     Active Substance: CELECOXIB
     Indication: MYOFASCITIS
     Dosage: 200 MG, 2X/DAY
     Route: 048
     Dates: start: 20181204, end: 20181204

REACTIONS (2)
  - Pruritus [Recovered/Resolved]
  - Mucocutaneous rash [Recovered/Resolved]

NARRATIVE: CASE EVENT DATE: 20181204
